FAERS Safety Report 6473843-0 (Version None)
Quarter: 2009Q4

REPORT INFORMATION
  Report Type: 
  Country: None (occurrence: None)
  Receive Date: 20091204
  Receipt Date: 20091130
  Transmission Date: 20100525
  Serious: Yes (Hospitalization)
  Sender: FDA-Public Use
  Company Number: FR-ROCHE-672244

PATIENT
  Age: 57 Year
  Sex: Male

DRUGS (10)
  1. VALGANCICLOVIR HCL [Suspect]
     Dosage: BY FIFTH POSTTRANSPLANTATION MONTH
     Route: 065
  2. VALGANCICLOVIR HCL [Suspect]
     Route: 065
  3. GANCICLOVIR [Suspect]
     Indication: CYTOMEGALOVIRUS INFECTION
     Route: 042
  4. GANCICLOVIR [Suspect]
     Route: 042
  5. MYCOPHENOLATE MOFETIL [Suspect]
     Route: 065
  6. PREDNISOLONE [Suspect]
     Indication: IMMUNOSUPPRESSION
     Route: 065
  7. TACROLIMUS [Suspect]
     Indication: IMMUNOSUPPRESSION
     Route: 065
  8. TACROLIMUS [Suspect]
     Route: 065
  9. METHYLPREDNISOLONE [Suspect]
     Route: 042
  10. METHYLPREDNISOLONE [Suspect]
     Route: 042

REACTIONS (4)
  - CYTOMEGALOVIRUS INFECTION [None]
  - RENAL FAILURE ACUTE [None]
  - THROMBOCYTOPENIA [None]
  - TUBULOINTERSTITIAL NEPHRITIS [None]
